FAERS Safety Report 8967623 (Version 1)
Quarter: 2012Q4

REPORT INFORMATION
  Report Type: 
  Country: JP (occurrence: JP)
  Receive Date: 20121217
  Receipt Date: 20121217
  Transmission Date: 20130627
  Serious: Yes (Hospitalization)
  Sender: FDA-Public Use
  Company Number: JP-009507513-1212JPN004953

PATIENT
  Age: 44 Year
  Sex: Male
  Weight: 78 kg

DRUGS (11)
  1. PEGINTRON [Suspect]
     Indication: CHRONIC HEPATITIS C
     Dosage: 1.5 Microgram per kilogram, qw
     Route: 058
     Dates: start: 20120605, end: 20120904
  2. PEGINTRON [Suspect]
     Dosage: 1.5 Microgram per kilogram, qw
     Route: 058
     Dates: start: 20120918
  3. REBETOL [Suspect]
     Indication: CHRONIC HEPATITIS C
     Dosage: 800 mg, qd
     Route: 048
     Dates: start: 20120605, end: 20120904
  4. REBETOL [Suspect]
     Dosage: 400 mg, qd
     Route: 048
     Dates: start: 20120918, end: 20120925
  5. REBETOL [Suspect]
     Dosage: 600 mg, qd
     Route: 048
     Dates: start: 20120925, end: 20121002
  6. REBETOL [Suspect]
     Dosage: 800 mg, qd
     Route: 048
     Dates: start: 20121002
  7. TELAVIC [Suspect]
     Indication: CHRONIC HEPATITIS C
     Dosage: 2250mg, qd
     Route: 048
     Dates: start: 20120605, end: 20120807
  8. TELAVIC [Suspect]
     Dosage: 1500mg, qd
     Route: 048
     Dates: start: 20120808
  9. ZYLORIC [Concomitant]
     Indication: HYPERURICAEMIA
     Dosage: 200 mg, qd
     Route: 048
  10. TALION (BEPOTASTINE BESYLATE) [Concomitant]
     Indication: PROPHYLAXIS
     Dosage: 20 mg, qd
     Route: 048
     Dates: start: 20120605, end: 20120904
  11. FEBURIC [Concomitant]
     Indication: PROPHYLAXIS
     Dosage: 40 mg, qd,formulation:por
     Route: 048
     Dates: end: 20120904

REACTIONS (1)
  - Anaemia [Recovered/Resolved]
